FAERS Safety Report 4321183-8 (Version None)
Quarter: 2004Q1

REPORT INFORMATION
  Report Type: 
  Country: None (occurrence: None)
  Receive Date: 20040322
  Receipt Date: 20020514
  Transmission Date: 20041129
  Serious: Yes (Hospitalization, Disabling)
  Sender: FDA-Public Use
  Company Number: WAES 0205USA01793

PATIENT
  Age: 65 Year
  Sex: Female
  Weight: 68 kg

DRUGS (11)
  1. [THERAPY UNSPECIFIED] [Concomitant]
  2. ACYCLOVIR [Concomitant]
  3. ASPIRIN [Concomitant]
  4. LIPITOR [Concomitant]
     Dates: end: 20011101
  5. CALCIUM (UNSPECIFIED) [Concomitant]
  6. PREMARIN [Concomitant]
     Dates: end: 20030101
  7. VIOXX [Suspect]
     Indication: BACK PAIN
     Route: 048
     Dates: start: 20010504, end: 20010501
  8. VIOXX [Suspect]
     Dates: start: 20000101
  9. VIOXX [Suspect]
     Indication: PAIN IN EXTREMITY
     Route: 048
     Dates: start: 20010504, end: 20010501
  10. VIOXX [Suspect]
     Dates: start: 20000101
  11. VITAMINS (UNSPECIFIED) [Concomitant]

REACTIONS (37)
  - ADVERSE EVENT [None]
  - ARTHRALGIA [None]
  - ARTHROPATHY [None]
  - ATRIAL FIBRILLATION [None]
  - BACK PAIN [None]
  - BASAL CELL CARCINOMA [None]
  - BLOOD POTASSIUM DECREASED [None]
  - BLOOD PRESSURE INCREASED [None]
  - BRONCHITIS [None]
  - BURSITIS [None]
  - CHEST DISCOMFORT [None]
  - CHEST PAIN [None]
  - COUGH [None]
  - DRUG INEFFECTIVE [None]
  - DRUG INTOLERANCE [None]
  - ECCHYMOSIS [None]
  - ELECTROCARDIOGRAM T WAVE AMPLITUDE DECREASED [None]
  - EXERCISE TOLERANCE DECREASED [None]
  - HEPATITIS [None]
  - HYPERCHOLESTEROLAEMIA [None]
  - HYPERTENSION [None]
  - INJURY [None]
  - INTERVERTEBRAL DISC DEGENERATION [None]
  - INTERVERTEBRAL DISC DISPLACEMENT [None]
  - INTERVERTEBRAL DISC PROTRUSION [None]
  - LUMBAR SPINAL STENOSIS [None]
  - MUSCLE CRAMP [None]
  - MYALGIA [None]
  - NON-CARDIAC CHEST PAIN [None]
  - PAIN IN EXTREMITY [None]
  - RADICULITIS CERVICAL [None]
  - RECURRENT CANCER [None]
  - RESPIRATORY TRACT INFECTION [None]
  - ROTATOR CUFF SYNDROME [None]
  - SPINAL OSTEOARTHRITIS [None]
  - VENTRICULAR EXTRASYSTOLES [None]
  - VIRAL UPPER RESPIRATORY TRACT INFECTION [None]
